FAERS Safety Report 8586494-9 (Version None)
Quarter: 2012Q3

REPORT INFORMATION
  Report Type: 
  Country: None (occurrence: None)
  Receive Date: 20120730
  Receipt Date: 20120716
  Transmission Date: 20120928
  Serious: Yes (Other)
  Sender: FDA-Public Use
  Company Number: 2012HGS-003529

PATIENT
  Age: 42 Year
  Sex: Female
  Weight: 77.4 kg

DRUGS (7)
  1. OXYCONTIN (OXYCODONE HYDROCHLORIDE) (OXYCODONE HYDROCHLORIDE) [Concomitant]
  2. NEXIUM [Concomitant]
  3. FLUCONAZOLE [Concomitant]
  4. MODAFINIL (MODAFINIL) (MODAFINIL) [Concomitant]
  5. IBUPROFEN TABLETS [Concomitant]
  6. BENLYSTA [Suspect]
     Indication: SYSTEMIC LUPUS ERYTHEMATOSUS
     Dosage: 1 IN 4 WK, INTRAVENOUS DRIP
     Route: 041
     Dates: start: 20120118
  7. MELOXICAM [Concomitant]

REACTIONS (15)
  - NAUSEA [None]
  - PLEURISY [None]
  - ASPARTATE AMINOTRANSFERASE INCREASED [None]
  - GAMMA-GLUTAMYLTRANSFERASE INCREASED [None]
  - NEOPLASM PROGRESSION [None]
  - PYREXIA [None]
  - NASOPHARYNGITIS [None]
  - LYMPHADENOPATHY [None]
  - HALLUCINATION [None]
  - ABDOMINAL DISTENSION [None]
  - THYROID NEOPLASM [None]
  - PNEUMONIA [None]
  - ALANINE AMINOTRANSFERASE INCREASED [None]
  - MORBID THOUGHTS [None]
  - ABDOMINAL PAIN UPPER [None]
